FAERS Safety Report 7662158-0 (Version None)
Quarter: 2011Q3

REPORT INFORMATION
  Report Type: 
  Country: None (occurrence: None)
  Receive Date: 20110805
  Receipt Date: 20101203
  Transmission Date: 20111222
  Serious: No
  Sender: FDA-Public Use
  Company Number: US-ABBOTT-10P-163-0689383-00

PATIENT
  Sex: Male

DRUGS (6)
  1. LOVAZA [Concomitant]
     Indication: PRODUCT USED FOR UNKNOWN INDICATION
  2. NIASPAN [Suspect]
     Dosage: 2 PILLS IN AM AND 1 PILL IN PM
  3. NIASPAN [Suspect]
     Indication: PRODUCT USED FOR UNKNOWN INDICATION
     Dates: start: 20101001
  4. NIASPAN [Suspect]
     Dosage: FOR THE NEXT FOUR WEEKS
  5. FLOMAX [Concomitant]
     Indication: PRODUCT USED FOR UNKNOWN INDICATION
  6. NIASPAN [Suspect]
     Dosage: FOR THE FIRST FOUR WEEKS
     Dates: start: 20101001

REACTIONS (1)
  - FLUSHING [None]
